FAERS Safety Report 4879908-9 (Version None)
Quarter: 2006Q1

REPORT INFORMATION
  Report Type: 
  Country: None (occurrence: None)
  Receive Date: 20060113
  Receipt Date: 20051115
  Transmission Date: 20060701
  Serious: Yes (Hospitalization)
  Sender: FDA-Public Use
  Company Number: CA-MERCK-0511CAN00083

PATIENT
  Age: 70 Year
  Sex: Male

DRUGS (5)
  1. PROSCAR [Suspect]
     Indication: BENIGN PROSTATIC HYPERPLASIA
     Route: 048
     Dates: start: 20050214
  2. CARBIDOPA AND LEVODOPA [Concomitant]
     Indication: PARKINSON'S DISEASE
     Route: 065
     Dates: start: 20040901
  3. [THERAPY UNSPECIFIED] [Concomitant]
     Indication: PARKINSON'S DISEASE
     Route: 065
     Dates: start: 20040901
  4. GLUCOSAMINE [Concomitant]
     Indication: PARKINSON'S DISEASE
     Route: 065
     Dates: start: 20020101
  5. VITAMINS (UNSPECIFIED) [Concomitant]
     Indication: ROUTINE HEALTH MAINTENANCE
     Route: 065
     Dates: start: 19990101

REACTIONS (1)
  - ABDOMINAL HERNIA [None]
